FAERS Safety Report 9377042 (Version 1)
Quarter: 2013Q3

REPORT INFORMATION
  Report Type: Spontaneous
  Country: GB (occurrence: GB)
  Receive Date: 20130701
  Receipt Date: 20130701
  Transmission Date: 20140515
  Serious: Yes (Other)
  Sender: FDA-Public Use
  Company Number: GB-PFIZER INC-2013190931

PATIENT
  Age: 30 Year
  Sex: Female
  Weight: 91 kg

DRUGS (6)
  1. CHAMPIX [Suspect]
     Indication: SMOKING CESSATION THERAPY
     Dosage: 1 MG, UNK
     Route: 048
     Dates: start: 20130514, end: 20130528
  2. AMITRIPTYLINE HYDROCHLORIDE [Concomitant]
     Dosage: UNK
  3. SALBUTAMOL [Concomitant]
     Dosage: UNK
  4. FLUTICASONE [Concomitant]
     Dosage: UNK
  5. TRAMADOL [Concomitant]
     Dosage: UNK
  6. PREGABALIN [Concomitant]
     Dosage: UNK

REACTIONS (2)
  - Depression [Recovered/Resolved]
  - Intentional self-injury [Recovered/Resolved]
